FAERS Safety Report 15626973 (Version 1)
Quarter: 2018Q4

REPORT INFORMATION
  Report Type: Report from Study
  Country: JP (occurrence: JP)
  Receive Date: 20181116
  Receipt Date: 20181116
  Transmission Date: 20190205
  Serious: Yes (Hospitalization, Other)
  Sender: FDA-Public Use
  Company Number: JP-JNJFOC-20181119477

PATIENT
  Age: 59 Year
  Sex: Female
  Weight: 29.25 kg

DRUGS (7)
  1. LENALIDOMIDE [Suspect]
     Active Substance: LENALIDOMIDE
     Indication: PLASMA CELL MYELOMA
     Route: 048
     Dates: start: 20180424
  2. DEXAMETHASONE. [Suspect]
     Active Substance: DEXAMETHASONE
     Indication: PLASMA CELL MYELOMA
     Route: 048
     Dates: start: 20180207, end: 20180228
  3. HAPTOGLOBIN [Concomitant]
     Indication: HAEMOLYTIC ANAEMIA
     Dates: start: 20180228, end: 20180228
  4. LENALIDOMIDE [Suspect]
     Active Substance: LENALIDOMIDE
     Indication: PLASMA CELL MYELOMA
     Route: 048
     Dates: start: 20180327, end: 20180416
  5. DARZALEX [Suspect]
     Active Substance: DARATUMUMAB
     Indication: PLASMA CELL MYELOMA
     Route: 042
     Dates: start: 20180207, end: 20180424
  6. LENALIDOMIDE [Suspect]
     Active Substance: LENALIDOMIDE
     Indication: PLASMA CELL MYELOMA
     Route: 048
     Dates: start: 20180207, end: 20180227
  7. DEXAMETHASONE. [Suspect]
     Active Substance: DEXAMETHASONE
     Indication: PLASMA CELL MYELOMA
     Route: 048
     Dates: start: 20180327, end: 20180501

REACTIONS (8)
  - Platelet count decreased [Recovered/Resolved]
  - Coombs direct test positive [Unknown]
  - Haemolytic anaemia [Recovered/Resolved]
  - Coombs indirect test positive [Unknown]
  - Neutropenia [Recovered/Resolved]
  - Renal impairment [Unknown]
  - Pancytopenia [Recovered/Resolved]
  - Antibody test positive [Unknown]

NARRATIVE: CASE EVENT DATE: 2018
